FAERS Safety Report 12988765 (Version 5)
Quarter: 2017Q1

REPORT INFORMATION
  Report Type: Report from Study
  Country: JP (occurrence: JP)
  Receive Date: 20161130
  Receipt Date: 20170315
  Transmission Date: 20170428
  Serious: Yes (Life-Threatening, Hospitalization, Other)
  Sender: FDA-Public Use
  Company Number: JP-ASTRAZENECA-2016SF06395

PATIENT
  Age: 86 Year
  Sex: Female
  Weight: 34 kg

DRUGS (10)
  1. THYRADIN [Concomitant]
     Active Substance: LEVOTHYROXINE
     Indication: HYPOTHYROIDISM
     Route: 048
     Dates: end: 20161025
  2. REBAMIPIDE [Concomitant]
     Active Substance: REBAMIPIDE
     Indication: GASTROENTERITIS
     Route: 048
     Dates: end: 20161004
  3. MIYA-BM [Concomitant]
     Active Substance: CLOSTRIDIUM BUTYRICUM SPORES STRAIN M-55
     Indication: GASTROENTERITIS
     Route: 048
     Dates: end: 20161025
  4. ROZEREM [Concomitant]
     Active Substance: RAMELTEON
     Dosage: 8.0MG UNKNOWN
     Route: 048
     Dates: end: 20161025
  5. ATORVASTATIN [Concomitant]
     Active Substance: ATORVASTATIN
     Indication: DYSLIPIDAEMIA
     Dosage: 100.0MG UNKNOWN
     Route: 048
     Dates: end: 20161025
  6. TAKEPRON [Concomitant]
     Active Substance: LANSOPRAZOLE
     Indication: GASTRIC ULCER
     Route: 048
     Dates: end: 20161025
  7. TAGRISSO [Suspect]
     Active Substance: OSIMERTINIB
     Indication: NON-SMALL CELL LUNG CANCER
     Route: 048
     Dates: start: 20160825, end: 20161003
  8. MEILAX [Concomitant]
     Active Substance: ETHYL LOFLAZEPATE
     Dosage: 1.0MG UNKNOWN
     Route: 048
     Dates: end: 20161025
  9. DOGMATYL [Concomitant]
     Active Substance: SULPIRIDE
     Dosage: NUMBER OF SEPARATE DOSAGES UNKNOWN
     Route: 048
     Dates: end: 20161025
  10. LOXOPROFEN [Concomitant]
     Active Substance: LOXOPROFEN
     Indication: CHEST PAIN
     Dosage: 60 MG, AS REQUIRED, EVERY DAY
     Route: 048
     Dates: end: 20161004

REACTIONS (4)
  - Pneumonia aspiration [Not Recovered/Not Resolved]
  - Hypoxia [Not Recovered/Not Resolved]
  - Interstitial lung disease [Recovering/Resolving]
  - Decreased activity [Not Recovered/Not Resolved]

NARRATIVE: CASE EVENT DATE: 20161004
